FAERS Safety Report 9638386 (Version 1)
Quarter: 2013Q4

REPORT INFORMATION
  Report Type: Spontaneous
  Country: US (occurrence: US)
  Receive Date: 20131022
  Receipt Date: 20131022
  Transmission Date: 20140711
  Serious: Yes (Other)
  Sender: FDA-Public Use
  Company Number: US-ABBVIE-13P-163-1158921-00

PATIENT
  Sex: Male
  Weight: 145.28 kg

DRUGS (4)
  1. SYNTHROID [Suspect]
     Indication: THYROID CANCER
     Dates: start: 1999, end: 2005
  2. SYNTHROID [Suspect]
     Dates: start: 201309
  3. SYNTHROID [Suspect]
     Indication: PRODUCT USED FOR UNKNOWN INDICATION
     Dates: start: 2005, end: 201309
  4. LEVOTHYROXINE [Suspect]
     Indication: PRODUCT USED FOR UNKNOWN INDICATION

REACTIONS (5)
  - Lymphoedema [Not Recovered/Not Resolved]
  - Chondropathy [Not Recovered/Not Resolved]
  - Abasia [Not Recovered/Not Resolved]
  - Urinary incontinence [Unknown]
  - Weight increased [Unknown]
